FAERS Safety Report 4904604-9 (Version None)
Quarter: 2006Q1

REPORT INFORMATION
  Report Type: 
  Country: None (occurrence: None)
  Receive Date: 20060208
  Receipt Date: 20051209
  Transmission Date: 20060701
  Serious: No
  Sender: FDA-Public Use
  Company Number: US-GLAXOSMITHKLINE-A0585250A

PATIENT
  Age: 67 Year
  Sex: Female

DRUGS (2)
  1. PAROXETINE HCL [Suspect]
     Indication: DEPRESSION
     Dosage: 20MG PER DAY
     Route: 048
     Dates: start: 20040101
  2. LORAZEPAM [Concomitant]

REACTIONS (4)
  - EATING DISORDER [None]
  - FEELING ABNORMAL [None]
  - IRRITABILITY [None]
  - NAUSEA [None]
